FAERS Safety Report 4958825-X (Version None)
Quarter: 2006Q1

REPORT INFORMATION
  Report Type: 
  Country: None (occurrence: None)
  Receive Date: 20060324
  Receipt Date: 20060310
  Transmission Date: 20060701
  Serious: Yes (Death, Hospitalization, Disabling)
  Sender: FDA-Public Use
  Company Number: 223016

PATIENT
  Age: 61 Year
  Sex: Female

DRUGS (3)
  1. RAPTIVA [Suspect]
     Indication: PSORIASIS
     Dosage: 49 MG, SINGLE, SUBCUTANEOUS
     Route: 058
     Dates: start: 20050311, end: 20050311
  2. CYCLOSPORINE [Concomitant]
  3. FERROUS SULFATE TAB [Concomitant]

REACTIONS (9)
  - BACK PAIN [None]
  - CEREBROVASCULAR ACCIDENT [None]
  - DEEP VEIN THROMBOSIS [None]
  - DEHYDRATION [None]
  - HAEMOGLOBIN DECREASED [None]
  - PNEUMONIA [None]
  - RENAL FAILURE ACUTE [None]
  - VOMITING [None]
  - WEIGHT DECREASED [None]
